FAERS Safety Report 16094354 (Version 3)
Quarter: 2019Q2

REPORT INFORMATION
  Report Type: Spontaneous
  Country: US (occurrence: US)
  Receive Date: 20190320
  Receipt Date: 20190627
  Transmission Date: 20190711
  Serious: Yes (Hospitalization, Other)
  Sender: FDA-Public Use
  Company Number: US-PFIZER INC-2019113394

PATIENT
  Age: 63 Year
  Sex: Female
  Weight: 76.66 kg

DRUGS (16)
  1. LISINOPRIL. [Concomitant]
     Active Substance: LISINOPRIL
     Indication: BLOOD PRESSURE MEASUREMENT
     Dosage: 10 MG, DAILY
     Dates: start: 201805, end: 201904
  2. IBRANCE [Suspect]
     Active Substance: PALBOCICLIB
     Indication: BREAST CANCER METASTATIC
     Dosage: 125 MG, CYCLIC (21 DAYS ON 7 DAYS OFF)
     Dates: start: 201811
  3. FUROSEMIDE. [Concomitant]
     Active Substance: FUROSEMIDE
     Indication: DIURETIC THERAPY
     Dosage: 40 MG, DAILY
     Dates: start: 201805
  4. AMIODARONE [Concomitant]
     Active Substance: AMIODARONE
     Dosage: UNK
     Dates: start: 201810
  5. CRESTOR [Concomitant]
     Active Substance: ROSUVASTATIN CALCIUM
     Dosage: UNK
     Dates: start: 201811
  6. METFORMIN [Concomitant]
     Active Substance: METFORMIN HYDROCHLORIDE
     Dosage: UNK
     Dates: start: 201806
  7. FUROSEMIDE. [Concomitant]
     Active Substance: FUROSEMIDE
     Indication: BLOOD PRESSURE MEASUREMENT
     Dosage: UNK
     Dates: start: 201806
  8. ZOFRAN [Concomitant]
     Active Substance: ONDANSETRON HYDROCHLORIDE
     Dosage: UNK
     Dates: start: 201811
  9. COREG [Concomitant]
     Active Substance: CARVEDILOL
     Indication: BLOOD PRESSURE MEASUREMENT
     Dosage: 12.5 MG, DAILY
     Dates: start: 201805
  10. LETROZOLE. [Concomitant]
     Active Substance: LETROZOLE
     Indication: HORMONE THERAPY
     Dosage: UNK
     Dates: start: 201811
  11. PROCRIT [Concomitant]
     Active Substance: ERYTHROPOIETIN
     Dosage: UNK UNK, AS NEEDED, (BIWEEKLY AS NEEDED)
     Dates: start: 201904
  12. COREG [Concomitant]
     Active Substance: CARVEDILOL
     Dosage: UNK
     Dates: start: 201806
  13. NORVASC [Concomitant]
     Active Substance: AMLODIPINE BESYLATE
     Dosage: UNK
     Dates: start: 201904
  14. XGEVA [Concomitant]
     Active Substance: DENOSUMAB
     Dosage: UNK UNK, MONTHLY
     Dates: start: 201812
  15. PRASUGREL. [Concomitant]
     Active Substance: PRASUGREL
     Dosage: UNK
     Dates: start: 201806
  16. ZYRTEC [Concomitant]
     Active Substance: CETIRIZINE HYDROCHLORIDE
     Dosage: UNK
     Dates: start: 201904

REACTIONS (5)
  - Gastroenteritis viral [Unknown]
  - Dehydration [Unknown]
  - Urinary tract infection [Recovered/Resolved]
  - Sepsis [Recovered/Resolved]
  - Fatigue [Not Recovered/Not Resolved]

NARRATIVE: CASE EVENT DATE: 201902
